FAERS Safety Report 14886066 (Version 2)
Quarter: 2018Q2

REPORT INFORMATION
  Report Type: Report from Study
  Country: US (occurrence: US)
  Receive Date: 20180512
  Receipt Date: 20180625
  Transmission Date: 20180711
  Serious: Yes (Other)
  Sender: FDA-Public Use
  Company Number: US-ROCHE-2032493

PATIENT
  Age: 63 Year
  Sex: Female

DRUGS (3)
  1. OCREVUS [Suspect]
     Active Substance: OCRELIZUMAB
     Indication: MULTIPLE SCLEROSIS
     Route: 042
     Dates: start: 20171117
  2. OCREVUS [Suspect]
     Active Substance: OCRELIZUMAB
     Route: 042
     Dates: start: 20180601
  3. ALEVE [Suspect]
     Active Substance: NAPROXEN SODIUM
     Indication: MYALGIA
     Route: 065

REACTIONS (18)
  - Rash [Unknown]
  - Fatigue [Recovered/Resolved]
  - Dysphonia [Recovered/Resolved]
  - Nasopharyngitis [Recovered/Resolved]
  - Pain in extremity [Recovered/Resolved]
  - Pain [Recovered/Resolved]
  - Influenza like illness [Recovered/Resolved]
  - Rash macular [Recovered/Resolved]
  - Feeling abnormal [Recovered/Resolved]
  - Musculoskeletal pain [Recovered/Resolved]
  - Insomnia [Unknown]
  - Pruritus [Recovered/Resolved]
  - Visual impairment [Unknown]
  - Drug ineffective [Unknown]
  - Formication [Recovered/Resolved]
  - Myalgia [Recovered/Resolved]
  - Malaise [Unknown]
  - Muscle twitching [Unknown]

NARRATIVE: CASE EVENT DATE: 20171117
